FAERS Safety Report 9278320 (Version 1)
Quarter: 2012Q4

REPORT INFORMATION
  Report Type: Spontaneous
  Country: US (occurrence: None)
  Receive Date: 20121109
  Receipt Date: 20121109
  Transmission Date: 20130627
  Serious: Yes (Hospitalization)
  Sender: FDA-Public Use
  Company Number: 2011S1000889

PATIENT
  Age: 89 Year
  Sex: Male
  Weight: 61 kg

DRUGS (4)
  1. CUBICIN [Suspect]
     Indication: CELLULITIS
     Route: 042
     Dates: start: 20111026, end: 20111218
  2. COUMADIN [Suspect]
     Route: 048
  3. AMIODARONE [Concomitant]
  4. PEPCID [Concomitant]

REACTIONS (4)
  - International normalised ratio increased [None]
  - Haematoma [None]
  - Gingival bleeding [None]
  - Dysphagia [None]
